FAERS Safety Report 8251571-9 (Version None)
Quarter: 2012Q2

REPORT INFORMATION
  Report Type: 
  Country: None (occurrence: None)
  Receive Date: 20120402
  Receipt Date: 20120326
  Transmission Date: 20120825
  Serious: Yes (Hospitalization, Other)
  Sender: FDA-Public Use
  Company Number: FR-PFIZER INC-A02200403122

PATIENT
  Age: 73 Year
  Sex: Male
  Weight: 80 kg

DRUGS (12)
  1. ERBITUX [Suspect]
     Indication: METASTASES TO LIVER
     Dosage: 500 MG (250 MG/M2), EVERY WEEK
     Route: 042
  2. IRINOTECAN HCL [Suspect]
     Indication: RECTAL CANCER
     Dosage: 360 MG (180 MG/M2), CYCLIC, EVERY 2 MONTHS
     Route: 042
     Dates: start: 20040722
  3. LEVOLEUCOVORIN CALCIUM [Suspect]
     Indication: METASTASES TO LUNG
  4. FLUOROURACIL [Suspect]
     Indication: METASTASES TO LUNG
     Dosage: 4800 MG (2400 MG/M2), UNK
     Route: 042
  5. IRINOTECAN HCL [Suspect]
     Indication: METASTASES TO LUNG
  6. LEVOLEUCOVORIN CALCIUM [Suspect]
     Indication: METASTASES TO LIVER
  7. LEVOLEUCOVORIN CALCIUM [Suspect]
     Indication: RECTAL CANCER
     Dosage: 400 MG (200 MG/M2), CYCLIC, EVERY 2 MONTHS
     Route: 042
     Dates: start: 20030201
  8. ERBITUX [Suspect]
     Indication: METASTASES TO LUNG
     Dosage: EVERY 15 DAYS
     Route: 042
     Dates: end: 20040914
  9. FLUOROURACIL [Suspect]
     Indication: RECTAL CANCER
     Dosage: 5,6 G,EVERY 2 MONTHS
     Route: 042
     Dates: start: 20030201
  10. ERBITUX [Suspect]
     Indication: RECTAL CANCER
     Dosage: 800 MG (400 MG/M2), EVERY WEEK AT THE FIRST COURSE
     Route: 042
     Dates: start: 20040722
  11. IRINOTECAN HCL [Suspect]
     Indication: METASTASES TO LIVER
  12. FLUOROURACIL [Suspect]
     Indication: METASTASES TO LIVER
     Dosage: 800 MG, UNK
     Route: 040
     Dates: start: 20040722

REACTIONS (5)
  - PRURITUS [None]
  - ERYTHEMA [None]
  - SKIN EXFOLIATION [None]
  - FACIAL PAIN [None]
  - PAPULE [None]
